FAERS Safety Report 15855372 (Version 7)
Quarter: 2020Q4

REPORT INFORMATION
  Report Type: Spontaneous
  Country: US (occurrence: US)
  Receive Date: 20190122
  Receipt Date: 20201229
  Transmission Date: 20210113
  Serious: No
  Sender: FDA-Public Use
  Company Number: US-PFIZER INC-2019021395

PATIENT
  Age: 14 Year
  Sex: Male
  Weight: 54.38 kg

DRUGS (2)
  1. GENOTROPIN [Suspect]
     Active Substance: SOMATROPIN
     Dosage: 2.6 MG, DAILY
     Dates: start: 20180614
  2. GENOTROPIN [Suspect]
     Active Substance: SOMATROPIN
     Dosage: UNK, ALTERNATE DAY (1.8 AND 2.0; ALTERNATING DAYS; NIGHTLY BY INJECTION)
     Dates: start: 2019

REACTIONS (5)
  - Wrong technique in device usage process [Unknown]
  - Device issue [Unknown]
  - Injection site discomfort [Unknown]
  - Injection site pain [Unknown]
  - Device information output issue [Unknown]
